FAERS Safety Report 9451108 (Version 1)
Quarter: 2013Q3

REPORT INFORMATION
  Report Type: Spontaneous
  Country: US (occurrence: US)
  Receive Date: 20130809
  Receipt Date: 20130809
  Transmission Date: 20140515
  Serious: Yes (Hospitalization, Other)
  Sender: FDA-Public Use
  Company Number: US-PFIZER INC-2013230592

PATIENT
  Age: 61 Year
  Sex: Female
  Weight: 75 kg

DRUGS (8)
  1. CELEBREX [Suspect]
     Indication: HERPES ZOSTER
     Dosage: 200MG DAILY
  2. NEURONTIN [Suspect]
     Indication: HERPES ZOSTER
     Dosage: 600MG DAILY
  3. NEURONTIN [Suspect]
     Dosage: 900 MG, 3X/DAY
  4. PROZAC [Concomitant]
     Indication: DEPRESSION
     Dosage: 60MG (20MG X 3) DAILY
  5. METFORMIN [Concomitant]
     Indication: DIABETES MELLITUS
     Dosage: UNK,2XDAY
  6. CLONAZEPAM [Concomitant]
     Indication: ANXIETY
     Dosage: UNK
  7. PRAVASTATIN [Concomitant]
     Dosage: UNK
  8. PREDNISONE [Concomitant]
     Dosage: 5MG AND 7.5 MG, ALTERNATE DAYS

REACTIONS (4)
  - Off label use [Unknown]
  - Staphylococcal infection [Unknown]
  - Musculoskeletal disorder [Unknown]
  - Arthropathy [Unknown]
